FAERS Safety Report 8152684-2 (Version None)
Quarter: 2012Q1

REPORT INFORMATION
  Report Type: 
  Country: None (occurrence: None)
  Receive Date: 20120221
  Receipt Date: 20120210
  Transmission Date: 20120608
  Serious: Yes (Death)
  Sender: FDA-Public Use
  Company Number: JP-GENZYME-THYM-1002010

PATIENT
  Sex: Male
  Weight: 75 kg

DRUGS (38)
  1. METHYLPREDNISOLONE SODIUM SUCCINATE [Concomitant]
     Indication: PREMEDICATION
     Dosage: UNK
     Route: 065
     Dates: start: 20090401, end: 20090405
  2. FILGRASTIM [Concomitant]
     Dosage: UNK
     Route: 065
     Dates: start: 20090721, end: 20090805
  3. FLUCONAZOLE [Concomitant]
     Indication: PROPHYLAXIS
     Dosage: UNK
     Route: 065
     Dates: start: 20090408, end: 20090921
  4. RABEPRAZOLE SODIUM [Concomitant]
     Indication: PROPHYLAXIS
     Dosage: UNK
     Route: 065
     Dates: start: 20090410, end: 20090921
  5. ITRACONAZOLE [Concomitant]
     Indication: PROPHYLAXIS
     Dosage: UNK
     Route: 065
     Dates: start: 20090101, end: 20090715
  6. ENTECAVIR [Concomitant]
     Indication: ANTIVIRAL PROPHYLAXIS
     Dosage: UNK
     Route: 065
     Dates: start: 20090331, end: 20090402
  7. CEFEPIME HYDROCHLORIDE [Concomitant]
     Indication: PROPHYLAXIS
     Dosage: UNK
     Route: 065
     Dates: start: 20090430, end: 20090502
  8. MEROPENEM [Concomitant]
     Indication: PROPHYLAXIS
     Dosage: UNK
     Route: 065
     Dates: start: 20090502, end: 20090511
  9. PIPERACILLIN W [Concomitant]
     Indication: PROPHYLAXIS
     Dosage: UNK
     Route: 065
     Dates: start: 20090513, end: 20090526
  10. FOSCARNET SODIUM [Concomitant]
     Dosage: UNK
     Route: 065
     Dates: start: 20090706, end: 20090714
  11. PREDNISOLONE [Concomitant]
     Indication: APLASTIC ANAEMIA
     Dosage: UNK
     Route: 065
     Dates: start: 20090408, end: 20090421
  12. THYMOGLOBULIN [Suspect]
     Indication: APLASTIC ANAEMIA
     Dosage: 175 MG, QD
     Route: 042
     Dates: start: 20090401, end: 20090405
  13. DEFERASIROX [Concomitant]
     Indication: APLASTIC ANAEMIA
     Dosage: UNK
     Route: 065
     Dates: start: 20090325, end: 20090918
  14. MICAFUNGIN SODIUM [Concomitant]
     Indication: PROPHYLAXIS
     Dosage: UNK
     Route: 065
     Dates: start: 20090512, end: 20090522
  15. FOSCARNET SODIUM [Concomitant]
     Dosage: UNK
     Route: 065
     Dates: start: 20090715, end: 20090729
  16. BIAPENEM [Concomitant]
     Dosage: UNK
     Route: 065
     Dates: start: 20090911, end: 20090921
  17. AMINO ACIDS [Concomitant]
     Indication: APLASTIC ANAEMIA
     Dosage: UNK
     Route: 065
     Dates: start: 20090731, end: 20090804
  18. ARBEKACIN SULFATE [Concomitant]
     Indication: PROPHYLAXIS
     Dosage: UNK
     Route: 065
     Dates: start: 20090912, end: 20090922
  19. SULFAMETHOPRIM [Concomitant]
     Indication: PROPHYLAXIS
     Dosage: UNK
     Route: 065
     Dates: start: 20090408, end: 20090921
  20. DEXCHLORPHENIRAMINE MALEATE [Concomitant]
     Indication: PREMEDICATION
     Dosage: UNK
     Route: 065
     Dates: start: 20090401, end: 20090401
  21. DEFERASIROX [Concomitant]
     Indication: IRON OVERLOAD
  22. FILGRASTIM [Concomitant]
     Dosage: UNK
     Route: 065
     Dates: start: 20090526, end: 20090616
  23. SPIRONOLACTONE [Concomitant]
     Indication: PROPHYLAXIS
     Dosage: UNK
     Route: 065
     Dates: start: 20090821, end: 20090827
  24. FOSCARNET SODIUM [Concomitant]
     Indication: PROPHYLAXIS
     Dosage: UNK
     Route: 065
     Dates: start: 20090527, end: 20090610
  25. BIAPENEM [Concomitant]
     Dosage: UNK
     Route: 065
     Dates: start: 20090724, end: 20090806
  26. CEFOZOPRAN HYDROCHLORIDE [Concomitant]
     Indication: PROPHYLAXIS
     Dosage: UNK
     Route: 065
     Dates: start: 20090626, end: 20090709
  27. CEFOZOPRAN HYDROCHLORIDE [Concomitant]
     Dosage: UNK
     Route: 065
     Dates: start: 20090807, end: 20090820
  28. PEPSIN TREATED HUMAN IMMUNOGLOBULIN [Concomitant]
     Indication: APLASTIC ANAEMIA
     Dosage: UNK
     Route: 065
     Dates: start: 20090704, end: 20090706
  29. SULBACTAM SODIUM CEFOPERAZONE SODIUM [Concomitant]
     Indication: PROPHYLAXIS
     Dosage: UNK
     Route: 065
     Dates: start: 20090826, end: 20090908
  30. FILGRASTIM [Concomitant]
     Indication: APLASTIC ANAEMIA
     Dosage: UNK
     Route: 065
     Dates: start: 20090406, end: 20090408
  31. FILGRASTIM [Concomitant]
     Dosage: UNK
     Route: 065
     Dates: start: 20090825, end: 20090922
  32. GANCICLOVIR [Concomitant]
     Dosage: UNK
     Dates: start: 20090811, end: 20090901
  33. ENTECAVIR [Concomitant]
     Indication: APLASTIC ANAEMIA
     Dosage: UNK
     Route: 065
     Dates: start: 20090101, end: 20090901
  34. TEPRENONE [Concomitant]
     Indication: APLASTIC ANAEMIA
     Dosage: UNK
     Route: 065
     Dates: start: 20090405, end: 20090918
  35. MEROPENEM [Concomitant]
     Dosage: UNK
     Route: 065
     Dates: start: 20090710, end: 20090723
  36. FUROSEMIDE [Concomitant]
     Indication: PROPHYLAXIS
     Dosage: UNK
     Route: 065
     Dates: start: 20090821, end: 20090827
  37. GANCICLOVIR [Concomitant]
     Indication: PROPHYLAXIS
     Dosage: UNK
     Route: 065
     Dates: start: 20090515, end: 20090526
  38. BIAPENEM [Concomitant]
     Indication: PROPHYLAXIS
     Dosage: UNK
     Route: 065
     Dates: start: 20090610, end: 20090623

REACTIONS (10)
  - HYPOKALAEMIA [None]
  - THERAPEUTIC RESPONSE DECREASED [None]
  - ARRHYTHMIA [None]
  - CYTOMEGALOVIRUS INFECTION [None]
  - OEDEMA [None]
  - RENAL IMPAIRMENT [None]
  - PYREXIA [None]
  - BLOOD CALCIUM DECREASED [None]
  - APLASTIC ANAEMIA [None]
  - ABDOMINAL PAIN UPPER [None]
